FAERS Safety Report 21813331 (Version 2)
Quarter: 2023Q2

REPORT INFORMATION
  Report Type: Report from Study
  Country: BR (occurrence: BR)
  Receive Date: 20230103
  Receipt Date: 20230622
  Transmission Date: 20230721
  Serious: Yes (Other)
  Sender: FDA-Public Use
  Company Number: BR-CELLTRION INC.-2022BR021939

PATIENT

DRUGS (3)
  1. INFLIXIMAB [Suspect]
     Active Substance: INFLIXIMAB
     Indication: Colitis ulcerative
     Dosage: 5 AMPOULES EVERY 2 MONTHS
     Route: 042
     Dates: start: 20230410
  2. LOSARTAN [Concomitant]
     Active Substance: LOSARTAN
     Indication: Hypertension
     Dosage: 50 MILLIGRAM,1 TABLET A DAY
     Route: 048
  3. AMLODIPINE BESYLATE [Concomitant]
     Active Substance: AMLODIPINE BESYLATE
     Indication: Hypertension
     Dosage: 0.5 MILLIGRAM, 1 TABLET A DAY
     Route: 048

REACTIONS (4)
  - Intestinal haemorrhage [Unknown]
  - Anaemia [Unknown]
  - Therapy interrupted [Unknown]
  - Product distribution issue [Unknown]
